FAERS Safety Report 11509791 (Version 1)
Quarter: 2015Q3

REPORT INFORMATION
  Report Type: Spontaneous
  Country: US (occurrence: US)
  Receive Date: 20150915
  Receipt Date: 20150915
  Transmission Date: 20151125
  Serious: No
  Sender: FDA-Public Use
  Company Number: US-JNJFOC-20150710893

PATIENT

DRUGS (3)
  1. TYLENOL [Suspect]
     Active Substance: ACETAMINOPHEN
     Route: 048
  2. UNSPECIFIED MEDICATION FOR NAUSEA [Suspect]
     Active Substance: UNSPECIFIED INGREDIENT
     Indication: NAUSEA
     Route: 065
  3. TYLENOL [Suspect]
     Active Substance: ACETAMINOPHEN
     Indication: HEADACHE
     Route: 048

REACTIONS (7)
  - Malaise [Unknown]
  - Dehydration [Unknown]
  - Hyperhidrosis [Unknown]
  - Hangover [Unknown]
  - Drug ineffective [Unknown]
  - Somnolence [Unknown]
  - Peripheral swelling [Unknown]

NARRATIVE: CASE EVENT DATE: 20150711
